FAERS Safety Report 7945958-9 (Version None)
Quarter: 2011Q4

REPORT INFORMATION
  Report Type: 
  Country: None (occurrence: None)
  Receive Date: 20111123
  Receipt Date: 20111121
  Transmission Date: 20120403
  Serious: Yes (Hospitalization)
  Sender: FDA-Public Use
  Company Number: 2011SP044952

PATIENT
  Age: 51 Year
  Sex: Male

DRUGS (6)
  1. BOCEPREVIR (SCH-503034) (200 MG) [Suspect]
     Indication: HEPATITIS C
     Dosage: 800 MG;TID;PO
     Route: 048
     Dates: start: 20110705, end: 20110914
  2. FUROSEMIDE [Concomitant]
  3. FOLSAN [Concomitant]
  4. SPIRONOLACTONE [Concomitant]
  5. PEG-INTRON [Suspect]
     Indication: HEPATITIS C
     Dosage: 100 MCG;QW;SC
     Route: 058
     Dates: start: 20110705, end: 20110914
  6. REBETOL [Suspect]
     Indication: HEPATITIS C
     Dosage: 1000 MG;QD;PO
     Route: 048
     Dates: start: 20110705, end: 20110914

REACTIONS (3)
  - CONDITION AGGRAVATED [None]
  - HEPATIC CIRRHOSIS [None]
  - PORTAL VEIN THROMBOSIS [None]
